FAERS Safety Report 21498118 (Version 1)
Quarter: 2022Q4

REPORT INFORMATION
  Report Type: Report from Study
  Country: US (occurrence: US)
  Receive Date: 20221024
  Receipt Date: 20221024
  Transmission Date: 20230112
  Serious: No
  Sender: FDA-Public Use
  Company Number: US-ABBVIE-4169714

PATIENT
  Sex: Male

DRUGS (1)
  1. VENCLEXTA [Suspect]
     Active Substance: VENETOCLAX
     Indication: Acute myeloid leukaemia
     Route: 048
     Dates: start: 20221006

REACTIONS (9)
  - Decreased appetite [Unknown]
  - Chills [Unknown]
  - Loss of personal independence in daily activities [Unknown]
  - Pyrexia [Unknown]
  - Blood urine present [Unknown]
  - Malaise [Unknown]
  - Dyspnoea [Unknown]
  - Ear pain [Unknown]
  - Hypersomnia [Unknown]
